FAERS Safety Report 7651257-5 (Version None)
Quarter: 2011Q3

REPORT INFORMATION
  Report Type: 
  Country: None (occurrence: None)
  Receive Date: 20110727
  Receipt Date: 20110711
  Transmission Date: 20111222
  Serious: Yes (Death)
  Sender: FDA-Public Use
  Company Number: 1000021970

PATIENT
  Age: 54 Year

DRUGS (5)
  1. ALCOHOL (ETHANOL) [Suspect]
  2. ACETAMINOPHEN [Suspect]
     Dosage: POSSIBLE OVERDOSE
  3. METHADONE HCL [Suspect]
     Dosage: POSSIBLE OVERDOSE
  4. CITALOPRAM HYDROBROMIDE [Suspect]
     Dosage: POSSIBLE OVERDOSE
  5. METOCLOPRAMIDE [Suspect]
     Dosage: POSSIBLE OVERDOSE

REACTIONS (7)
  - CIRRHOSIS ALCOHOLIC [None]
  - OVERDOSE [None]
  - ARRHYTHMIA [None]
  - PULMONARY CONGESTION [None]
  - RESPIRATORY DEPRESSION [None]
  - ACCIDENTAL POISONING [None]
  - HEPATITIS [None]
